FAERS Safety Report 25650959 (Version 2)
Quarter: 2025Q3

REPORT INFORMATION
  Report Type: Spontaneous
  Country: CN (occurrence: CN)
  Receive Date: 20250806
  Receipt Date: 20250909
  Transmission Date: 20251021
  Serious: Yes (Hospitalization, Other)
  Sender: ELI LILLY AND COMPANY
  Company Number: CN-ELI_LILLY_AND_COMPANY-CN202506007529

PATIENT
  Age: 67 Year
  Sex: Female
  Weight: 61 kg

DRUGS (2)
  1. KISUNLA [Suspect]
     Active Substance: DONANEMAB-AZBT
     Indication: Dementia Alzheimer^s type
     Dosage: 700 MG, MONTHLY (1/M) (FIRST INFUSION)
     Route: 042
     Dates: start: 20250412
  2. KISUNLA [Suspect]
     Active Substance: DONANEMAB-AZBT
     Indication: Cognitive disorder
     Dosage: 700 MG, MONTHLY (1/M) (SECOND INFUSION)
     Route: 042
     Dates: start: 20250514, end: 20250608

REACTIONS (15)
  - Amyloid related imaging abnormality-oedema/effusion [Recovering/Resolving]
  - Amyloid related imaging abnormality-microhaemorrhages and haemosiderin deposits [Not Recovered/Not Resolved]
  - Neurogenic bladder [Unknown]
  - Periventricular leukomalacia [Unknown]
  - Cerebral hypoperfusion [Unknown]
  - Vision blurred [Unknown]
  - Hypotonic urinary bladder [Unknown]
  - Memory impairment [Not Recovered/Not Resolved]
  - Mood altered [Unknown]
  - Irritability [Unknown]
  - Lung opacity [Unknown]
  - Aortic arteriosclerosis [Unknown]
  - Thyroid calcification [Unknown]
  - Nasal turbinate hypertrophy [Unknown]
  - Headache [Unknown]
